FAERS Safety Report 6408502-3 (Version None)
Quarter: 2009Q4

REPORT INFORMATION
  Report Type: 
  Country: None (occurrence: None)
  Receive Date: 20091021
  Receipt Date: 20091013
  Transmission Date: 20100525
  Serious: Yes (Hospitalization, Other)
  Sender: FDA-Public Use
  Company Number: FI-ROCHE-662777

PATIENT
  Sex: Female

DRUGS (7)
  1. XELODA [Suspect]
     Dosage: FREQUENCY: CYCLES OF 14 DAYS+7 DAY REST. DOSE REPORTED AS: 1000MGX2.
     Route: 048
     Dates: start: 20090601, end: 20091012
  2. AVASTIN [Suspect]
     Route: 042
     Dates: start: 20090601, end: 20091012
  3. OXALIPLATIN [Suspect]
     Route: 042
     Dates: start: 20090601
  4. OXALIPLATIN [Suspect]
     Dosage: DOSE REDUCTION: 150MG. 4TH, 5TH AND 6TH INFUSION.
     Route: 042
  5. OXALIPLATIN [Suspect]
     Dosage: DOSE REDUCTION: 100MG IN 7TH INFUSION.
     Route: 042
     Dates: end: 20091012
  6. SOLU-CORTEF [Concomitant]
     Indication: PROPHYLAXIS
     Dosage: DRUG: SOLUKORTEF.
     Route: 042
     Dates: start: 20090801
  7. ANTIEMETIC NOS [Concomitant]
     Dosage: DRUG REPORTED AS: UNSPECIFIED ANTIEMETIC AGENT.

REACTIONS (8)
  - ANXIETY [None]
  - BRADYCARDIA [None]
  - CHEST DISCOMFORT [None]
  - DEPRESSED LEVEL OF CONSCIOUSNESS [None]
  - ERYTHEMA [None]
  - HYPERTENSION [None]
  - HYPOTENSION [None]
  - PRURITUS [None]
